FAERS Safety Report 7532273-0 (Version None)
Quarter: 2011Q2

REPORT INFORMATION
  Report Type: 
  Country: None (occurrence: None)
  Receive Date: 20110608
  Receipt Date: 20110317
  Transmission Date: 20111010
  Serious: No
  Sender: FDA-Public Use
  Company Number: US-TEVA-271809USA

PATIENT
  Sex: Female

DRUGS (1)
  1. ENJUVIA [Suspect]
     Dates: start: 20110302, end: 20110311

REACTIONS (13)
  - ABDOMINAL DISTENSION [None]
  - DIARRHOEA [None]
  - PAIN [None]
  - OEDEMA PERIPHERAL [None]
  - HEADACHE [None]
  - FLATULENCE [None]
  - DEPRESSION [None]
  - LIP DRY [None]
  - MUSCLE SPASMS [None]
  - BRONCHITIS [None]
  - THIRST [None]
  - SLUGGISHNESS [None]
  - PRURITUS GENERALISED [None]
